FAERS Safety Report 21381903 (Version 4)
Quarter: 2022Q4

REPORT INFORMATION
  Report Type: Report from Study
  Country: CA (occurrence: CA)
  Receive Date: 20220927
  Receipt Date: 20221214
  Transmission Date: 20230112
  Serious: Yes (Hospitalization, Other)
  Sender: FDA-Public Use
  Company Number: CA-HLS-202201759

PATIENT
  Age: 60 Year
  Sex: Female

DRUGS (1)
  1. CLOZARIL [Suspect]
     Active Substance: CLOZAPINE
     Indication: Schizophrenia
     Dosage: UNKNOWN
     Route: 048
     Dates: start: 20040531

REACTIONS (4)
  - Neutropenia [Unknown]
  - COVID-19 [Unknown]
  - Invasive ductal breast carcinoma [Unknown]
  - Leukopenia [Unknown]

NARRATIVE: CASE EVENT DATE: 20221101
